FAERS Safety Report 20668028 (Version 1)
Quarter: 2022Q2

REPORT INFORMATION
  Report Type: Report from Study
  Country: JP (occurrence: JP)
  Receive Date: 20220404
  Receipt Date: 20220404
  Transmission Date: 20220720
  Serious: Yes (Hospitalization)
  Sender: FDA-Public Use
  Company Number: JP-JNJFOC-20220357693

PATIENT
  Age: 63 Year
  Sex: Female

DRUGS (21)
  1. MACITENTAN [Suspect]
     Active Substance: MACITENTAN
     Indication: Pulmonary arterial hypertension
     Dosage: IN THE EVENING
     Route: 048
     Dates: start: 20180830, end: 20180830
  2. MACITENTAN [Suspect]
     Active Substance: MACITENTAN
     Dosage: IN THE MORNING
     Route: 048
     Dates: start: 20180831, end: 20180901
  3. MACITENTAN [Suspect]
     Active Substance: MACITENTAN
     Dosage: IN THE AFTERNOON
     Route: 048
     Dates: start: 20180902, end: 20180906
  4. DOBUTAMINE HYDROCHLORIDE [Suspect]
     Active Substance: DOBUTAMINE HYDROCHLORIDE
     Indication: Right ventricular failure
     Dosage: 3~4GAMMA
     Route: 042
     Dates: end: 20180831
  5. OXYGEN [Concomitant]
     Active Substance: OXYGEN
     Dosage: DOSE UNKNOWN
     Route: 055
  6. PREDONINE [Concomitant]
     Active Substance: PREDNISOLONE
     Indication: Dermatomyositis
     Route: 048
  7. NEORAL [Concomitant]
     Active Substance: CYCLOSPORINE
     Indication: Dermatomyositis
     Route: 048
  8. SULFAMETHOXAZOLE\TRIMETHOPRIM [Concomitant]
     Active Substance: SULFAMETHOXAZOLE\TRIMETHOPRIM
     Indication: Prophylaxis
     Route: 048
  9. ALFACALCIDOL [Concomitant]
     Active Substance: ALFACALCIDOL
     Indication: Prophylaxis
     Route: 048
  10. VONOPRAZAN FUMARATE [Concomitant]
     Active Substance: VONOPRAZAN FUMARATE
     Indication: Prophylaxis
     Route: 048
  11. LEVOTHYROXINE SODIUM [Concomitant]
     Active Substance: LEVOTHYROXINE SODIUM
     Indication: Hypothyroidism
     Dosage: 75~100G
     Route: 048
  12. BIFIDOBACTERIUM SPP. [Concomitant]
     Active Substance: BIFIDOBACTERIUM SPP.
     Indication: Prophylaxis
     Route: 048
  13. BISOPROLOL FUMARATE [Concomitant]
     Active Substance: BISOPROLOL FUMARATE
     Indication: Atrial fibrillation
     Route: 048
  14. EDOXABAN TOSYLATE [Concomitant]
     Active Substance: EDOXABAN TOSYLATE
     Indication: Prophylaxis
     Route: 048
  15. ADCIRCA [Concomitant]
     Active Substance: TADALAFIL
     Indication: Pulmonary arterial hypertension
     Route: 048
  16. FUROSEMIDE [Concomitant]
     Active Substance: FUROSEMIDE
     Indication: Right ventricular failure
     Route: 048
  17. SPIRONOLACTONE [Concomitant]
     Active Substance: SPIRONOLACTONE
     Indication: Right ventricular failure
     Route: 048
  18. CEFAZOLIN SODIUM [Concomitant]
     Active Substance: CEFAZOLIN SODIUM
     Indication: Prophylaxis
     Route: 042
     Dates: end: 20180830
  19. DIETARY SUPPLEMENT\PROBIOTICS [Concomitant]
     Active Substance: DIETARY SUPPLEMENT\PROBIOTICS
     Indication: Prophylaxis
     Route: 048
     Dates: start: 20180905, end: 20180909
  20. PIPERACILLIN SODIUM\TAZOBACTAM SODIUM [Concomitant]
     Active Substance: PIPERACILLIN SODIUM\TAZOBACTAM SODIUM
     Indication: Device related infection
     Dates: start: 20180905, end: 20180909
  21. DOBUTREX [Concomitant]
     Active Substance: DOBUTAMINE HYDROCHLORIDE
     Indication: Right ventricular failure
     Dosage: DOSE UNKNOWN
     Route: 065
     Dates: start: 20180901

REACTIONS (1)
  - Pyrexia [Recovered/Resolved]

NARRATIVE: CASE EVENT DATE: 20180901
